FAERS Safety Report 9665041 (Version 1)
Quarter: 2013Q4

REPORT INFORMATION
  Report Type: Report from Study
  Country: RU (occurrence: RU)
  Receive Date: 20131101
  Receipt Date: 20131101
  Transmission Date: 20140711
  Serious: Yes (Hospitalization)
  Sender: FDA-Public Use
  Company Number: PHHO2013RU013819

PATIENT
  Age: 73 Year
  Sex: Male
  Weight: 86.3 kg

DRUGS (10)
  1. BLINDED ALISKIREN [Suspect]
     Indication: CARDIAC FAILURE CHRONIC
     Dosage: CODE NOT BROKEN
     Route: 048
     Dates: start: 20091103, end: 20130710
  2. BLINDED ENALAPRIL [Suspect]
     Indication: CARDIAC FAILURE CHRONIC
     Dosage: CODE NOT BROKEN
     Route: 048
     Dates: start: 20091103, end: 20130710
  3. BLINDED NO TREATMENT RECEIVED [Suspect]
     Indication: CARDIAC FAILURE CHRONIC
     Dosage: CODE NOT BROKEN
     Route: 048
     Dates: start: 20091103, end: 20130710
  4. BLINDED ALISKIREN [Suspect]
     Dosage: CODE NOT BROKEN
     Route: 048
     Dates: start: 20130729
  5. BLINDED ENALAPRIL [Suspect]
     Dosage: CODE NOT BROKEN
     Route: 048
     Dates: start: 20130729
  6. BLINDED NO TREATMENT RECEIVED [Suspect]
     Dosage: CODE NOT BROKEN
     Route: 048
     Dates: start: 20130729
  7. DIGOXIN [Suspect]
     Indication: CARDIAC FAILURE CONGESTIVE
     Dosage: 0.25 MG, BID
     Route: 048
     Dates: start: 20130710
  8. BISOPROLOL [Concomitant]
     Indication: CARDIAC FAILURE CONGESTIVE
     Dosage: 5 MG, UNK (OID)
     Dates: start: 20130710
  9. BISOPROLOL [Concomitant]
     Indication: HYPERTENSION
  10. BISOPROLOL [Concomitant]
     Indication: ATRIAL FIBRILLATION

REACTIONS (2)
  - Malignant melanoma [Recovered/Resolved]
  - Friedreich^s ataxia [Recovered/Resolved]
